FAERS Safety Report 13617566 (Version 1)
Quarter: 2017Q2

REPORT INFORMATION
  Report Type: Spontaneous
  Country: US (occurrence: US)
  Receive Date: 20170606
  Receipt Date: 20170606
  Transmission Date: 20170830
  Serious: No
  Sender: FDA-Public Use
  Company Number: US-SA-2017SA040489

PATIENT
  Sex: Male

DRUGS (2)
  1. HUMALIN [Concomitant]
     Active Substance: INSULIN NOS
  2. LANTUS [Suspect]
     Active Substance: INSULIN GLARGINE
     Route: 065

REACTIONS (2)
  - Hypoaesthesia [Unknown]
  - Skin discolouration [Unknown]
